FAERS Safety Report 9551080 (Version 1)
Quarter: 2013Q3

REPORT INFORMATION
  Report Type: Spontaneous
  Country: US (occurrence: US)
  Receive Date: 20130925
  Receipt Date: 20130925
  Transmission Date: 20140515
  Serious: No
  Sender: FDA-Public Use
  Company Number: US-009507513-1309USA006408

PATIENT
  Age: 28 Year
  Sex: Male

DRUGS (1)
  1. NASONEX [Suspect]
     Indication: SEASONAL ALLERGY
     Dosage: UNK
     Route: 045
     Dates: start: 20130907

REACTIONS (1)
  - Insomnia [Not Recovered/Not Resolved]
